FAERS Safety Report 8229849-4 (Version None)
Quarter: 2012Q1

REPORT INFORMATION
  Report Type: 
  Country: None (occurrence: None)
  Receive Date: 20120323
  Receipt Date: 20120309
  Transmission Date: 20120608
  Serious: Yes (Death, Hospitalization, Other)
  Sender: FDA-Public Use
  Company Number: CN-PAR PHARMACEUTICAL, INC-2012SCPR004276

PATIENT

DRUGS (9)
  1. IMIPENEM [Suspect]
     Indication: INFECTION PROPHYLAXIS
     Dosage: UNK, UNKNOWN
     Route: 065
  2. IMMUNE GLOBULIN NOS [Concomitant]
     Indication: PRODUCT USED FOR UNKNOWN INDICATION
     Dosage: UNK, UNKNOWN
     Route: 065
  3. METHYLPREDNISOLONE [Suspect]
     Dosage: 40 MG, / DAY
     Route: 065
  4. MOXIFLOXACIN [Suspect]
     Indication: INFECTION PROPHYLAXIS
     Dosage: UNK, UNKNOWN
     Route: 065
  5. ALBUMIN (HUMAN) [Concomitant]
     Indication: PRODUCT USED FOR UNKNOWN INDICATION
     Dosage: UNK, UNKNOWN
     Route: 065
  6. DEXAMETHASONE [Suspect]
     Indication: PRODUCT USED FOR UNKNOWN INDICATION
     Dosage: UNK, UNKNOWN
     Route: 065
  7. ALLOPURINOL [Suspect]
     Indication: PRODUCT USED FOR UNKNOWN INDICATION
     Dosage: 0.1 G, BID
     Route: 065
  8. DEXAMETHASONE [Suspect]
     Dosage: 2 MG, / DAY
     Route: 065
  9. METHYLPREDNISOLONE [Suspect]
     Indication: PRODUCT USED FOR UNKNOWN INDICATION
     Dosage: 60 MG, / DAY
     Route: 065

REACTIONS (13)
  - PULMONARY HAEMORRHAGE [None]
  - ANGINA PECTORIS [None]
  - NECROSIS [None]
  - HYPOPROTEINAEMIA [None]
  - DYSPHAGIA [None]
  - CORONARY ARTERY DISEASE [None]
  - DIABETES MELLITUS [None]
  - DEATH [None]
  - ZYGOMYCOSIS [None]
  - IMMUNOSUPPRESSION [None]
  - HEPATITIS [None]
  - ANAEMIA [None]
  - EPIDERMOLYSIS BULLOSA [None]
